FAERS Safety Report 15500499 (Version 1)
Quarter: 2018Q4

REPORT INFORMATION
  Report Type: Spontaneous
  Country: FR (occurrence: FR)
  Receive Date: 20181015
  Receipt Date: 20181015
  Transmission Date: 20190205
  Serious: Yes (Other)
  Sender: FDA-Public Use
  Company Number: FR-ELI_LILLY_AND_COMPANY-FR201810005323

PATIENT
  Age: 71 Year
  Sex: Male
  Weight: 62 kg

DRUGS (3)
  1. IRINOTECAN [Suspect]
     Active Substance: IRINOTECAN
     Indication: SMALL INTESTINE CARCINOMA METASTATIC
     Dosage: 180 MG/M2, UNKNOWN
     Route: 041
     Dates: start: 201804
  2. FLUOROURACILE [Suspect]
     Active Substance: FLUOROURACIL
     Indication: SMALL INTESTINE CARCINOMA METASTATIC
     Dosage: 400 MG/M2, UNKNOWN
     Route: 041
     Dates: start: 201804
  3. ERBITUX [Suspect]
     Active Substance: CETUXIMAB
     Indication: SMALL INTESTINE CARCINOMA METASTATIC
     Dosage: 500 MG/M2, UNKNOWN
     Route: 041
     Dates: start: 201804

REACTIONS (3)
  - Paraesthesia [Not Recovered/Not Resolved]
  - Rash [Not Recovered/Not Resolved]
  - Alopecia [Not Recovered/Not Resolved]

NARRATIVE: CASE EVENT DATE: 201804
